FAERS Safety Report 16358432 (Version 3)
Quarter: 2019Q2

REPORT INFORMATION
  Report Type: Spontaneous
  Country: US (occurrence: US)
  Receive Date: 20190527
  Receipt Date: 20190628
  Transmission Date: 20190711
  Serious: Yes (Other)
  Sender: FDA-Public Use
  Company Number: US-AMGEN INC.-USASP2019081617

PATIENT
  Age: 63 Year
  Sex: Female
  Weight: 72.11 kg

DRUGS (1)
  1. AIMOVIG [Suspect]
     Active Substance: ERENUMAB-AOOE
     Indication: PRODUCT USED FOR UNKNOWN INDICATION
     Dosage: 70 MILLIGRAM
     Route: 065

REACTIONS (2)
  - Neck pain [Recovered/Resolved]
  - Muscle strain [Unknown]

NARRATIVE: CASE EVENT DATE: 20190521
